FAERS Safety Report 6464152-4 (Version None)
Quarter: 2009Q4

REPORT INFORMATION
  Report Type: 
  Country: None (occurrence: None)
  Receive Date: 20091201
  Receipt Date: 20091023
  Transmission Date: 20100525
  Serious: Yes (Hospitalization, Other)
  Sender: FDA-Public Use
  Company Number: US-AMGEN-QUU355437

PATIENT
  Sex: Female
  Weight: 55.8 kg

DRUGS (8)
  1. ENBREL [Suspect]
     Indication: RHEUMATOID ARTHRITIS
     Dates: end: 20090810
  2. METHOTREXATE [Suspect]
     Dates: start: 20060718, end: 20090617
  3. ZESTORETIC [Concomitant]
     Dates: start: 20060718
  4. DIPYRIDAMOLE [Concomitant]
     Dates: start: 20060718
  5. PROTONIX [Concomitant]
     Dates: start: 20060718
  6. FOSAMAX [Concomitant]
     Dates: start: 20060718
  7. VICODIN [Concomitant]
     Dates: start: 20060718
  8. FOLIC ACID [Concomitant]
     Dates: start: 20060718

REACTIONS (2)
  - PANCYTOPENIA [None]
  - THROMBOCYTOPENIA [None]
